FAERS Safety Report 19081665 (Version 2)
Quarter: 2021Q2

REPORT INFORMATION
  Report Type: Other
  Country: SK (occurrence: SK)
  Receive Date: 20210401
  Receipt Date: 20210408
  Transmission Date: 20210717
  Serious: Yes (Other)
  Sender: FDA-Public Use
  Company Number: SK-ROCHE-2799779

PATIENT
  Age: 31 Year
  Sex: Female
  Weight: 58 kg

DRUGS (1)
  1. ACTILYSE [Suspect]
     Active Substance: ALTEPLASE
     Indication: CEREBROVASCULAR ACCIDENT
     Route: 042

REACTIONS (6)
  - Hypomagnesaemia [Unknown]
  - Blood calcium decreased [Unknown]
  - Cerebral artery stenosis [Unknown]
  - Maternal exposure during pregnancy [Unknown]
  - Cerebral ischaemia [Unknown]
  - Deep vein thrombosis [Unknown]
